FAERS Safety Report 11157928 (Version 1)
Quarter: 2015Q2

REPORT INFORMATION
  Report Type: Spontaneous
  Country: KZ (occurrence: None)
  Receive Date: 20150601
  Receipt Date: 20150601
  Transmission Date: 20150821
  Serious: Yes (Life-Threatening, Other)
  Sender: FDA-Public Use
  Company Number: KZ2015GSK068119

PATIENT
  Age: 35 Year
  Sex: Female
  Weight: 55 kg

DRUGS (2)
  1. COMBIVIR [Suspect]
     Active Substance: LAMIVUDINE\ZIDOVUDINE
     Indication: PRODUCT USED FOR UNKNOWN INDICATION
     Route: 048
     Dates: start: 20141029, end: 20150315
  2. TRUVADA [Concomitant]
     Active Substance: EMTRICITABINE\TENOFOVIR DISOPROXIL FUMARATE

REACTIONS (13)
  - Caesarean section [None]
  - Cholecystitis [None]
  - Anaemia [None]
  - Uterine atony [None]
  - Maternal exposure during pregnancy [None]
  - Cholestasis [None]
  - Hepatic haematoma [None]
  - Splenomegaly [None]
  - Cardiomyopathy [None]
  - Retinal vascular disorder [None]
  - Sinus bradycardia [None]
  - Haemorrhage [None]
  - Cardiovascular insufficiency [None]

NARRATIVE: CASE EVENT DATE: 20150315
